FAERS Safety Report 8808868 (Version 2)
Quarter: 2012Q4

REPORT INFORMATION
  Report Type: Report from Study
  Country: HU (occurrence: HU)
  Receive Date: 20120926
  Receipt Date: 20121001
  Transmission Date: 20130627
  Serious: Yes (Hospitalization)
  Sender: FDA-Public Use
  Company Number: HU-SANOFI-AVENTIS-2012SA064243

PATIENT
  Age: 74 Year
  Sex: Male
  Weight: 80 kg

DRUGS (7)
  1. CABAZITAXEL [Suspect]
     Indication: PROSTATE CANCER
     Route: 042
     Dates: start: 20120723, end: 20120723
  2. PREDNISOLONE [Suspect]
     Indication: PROSTATE CANCER
     Route: 048
     Dates: start: 20120723, end: 20120808
  3. ACCUZIDE [Concomitant]
     Route: 048
  4. METOPROLOL [Concomitant]
     Route: 048
  5. FRAXIPARINE /FRA/ [Concomitant]
     Route: 058
  6. LORNOXICAM [Concomitant]
     Route: 065
  7. CONTRAMAL [Concomitant]
     Route: 065

REACTIONS (2)
  - Duodenal ulcer [Recovered/Resolved]
  - Cystitis [Recovered/Resolved]
